FAERS Safety Report 4439165-4 (Version None)
Quarter: 2004Q3

REPORT INFORMATION
  Report Type: 
  Country: None (occurrence: None)
  Receive Date: 20040901
  Receipt Date: 20040608
  Transmission Date: 20050211
  Serious: Yes (Death, Life-Threatening, Hospitalization)
  Sender: FDA-Public Use
  Company Number: PHBS2004JP07535

PATIENT
  Age: 55 Year
  Sex: Male
  Weight: 68 kg

DRUGS (4)
  1. GLEEVEC [Suspect]
     Indication: CHRONIC MYELOID LEUKAEMIA
     Route: 048
     Dates: start: 20031024, end: 20031124
  2. GLEEVEC [Suspect]
     Route: 048
     Dates: start: 20031125, end: 20040511
  3. ADALAT [Concomitant]
     Dates: start: 20031015, end: 20040511
  4. ZYLORIC [Concomitant]
     Dates: start: 20031015, end: 20040511

REACTIONS (17)
  - BLOOD BILIRUBIN INCREASED [None]
  - COMA HEPATIC [None]
  - DYSPEPSIA [None]
  - HAEMODIALYSIS [None]
  - HEPATIC ENCEPHALOPATHY [None]
  - HEPATITIS [None]
  - HEPATITIS B [None]
  - HEPATITIS FULMINANT [None]
  - HYPOTENSION [None]
  - JAUNDICE [None]
  - LIVER FUNCTION TEST ABNORMAL [None]
  - MALAISE [None]
  - MULTI-ORGAN FAILURE [None]
  - PNEUMONIA [None]
  - RENAL FAILURE [None]
  - RESPIRATORY DISTRESS [None]
  - RESPIRATORY FAILURE [None]
